FAERS Safety Report 15003551 (Version 1)
Quarter: 2018Q2

REPORT INFORMATION
  Report Type: Spontaneous
  Country: US (occurrence: US)
  Receive Date: 20180613
  Receipt Date: 20180613
  Transmission Date: 20180711
  Serious: No
  Sender: FDA-Public Use
  Company Number: US-UNITED THERAPEUTICS-UNT-2018-008209

PATIENT
  Sex: Female

DRUGS (1)
  1. REMODULIN [Suspect]
     Active Substance: TREPROSTINIL
     Indication: PULMONARY ARTERIAL HYPERTENSION
     Dosage: 0.04 ?G/KG, CONTINUING
     Route: 058
     Dates: start: 20180517

REACTIONS (6)
  - Catheter site nodule [Unknown]
  - Dizziness [Unknown]
  - Catheter site infection [Unknown]
  - Fatigue [Unknown]
  - Flushing [Unknown]
  - Catheter site pain [Unknown]
